FAERS Safety Report 15898787 (Version 1)
Quarter: 2019Q1

REPORT INFORMATION
  Report Type: Spontaneous
  Country: US (occurrence: US)
  Receive Date: 20190201
  Receipt Date: 20190201
  Transmission Date: 20190417
  Serious: Yes (Other)
  Sender: FDA-Public Use
  Company Number: US-TEVA-2019-US-1005708

PATIENT
  Sex: Female

DRUGS (1)
  1. CITALOPRAM [Suspect]
     Active Substance: CITALOPRAM HYDROBROMIDE
     Indication: DEPRESSION
     Dates: start: 2015, end: 2015

REACTIONS (6)
  - Abortion spontaneous [Unknown]
  - Suicidal ideation [Unknown]
  - Emotional distress [Unknown]
  - Depression [Unknown]
  - Feeling abnormal [Unknown]
  - Maternal exposure during pregnancy [Unknown]
